FAERS Safety Report 6315537-8 (Version None)
Quarter: 2009Q3

REPORT INFORMATION
  Report Type: 
  Country: None (occurrence: None)
  Receive Date: 20090819
  Receipt Date: 20090626
  Transmission Date: 20100115
  Serious: Yes (Other)
  Sender: FDA-Public Use
  Company Number: IE-PFIZER INC-2008067898

PATIENT
  Age: 43 Year

DRUGS (4)
  1. LIPITOR [Suspect]
     Indication: HYPERLIPIDAEMIA
     Dosage: DAILY: EVERY DAY
     Route: 048
     Dates: start: 20071213, end: 20080812
  2. LIPITOR [Suspect]
     Indication: ARTERIOSCLEROSIS CORONARY ARTERY
  3. LANSOPRAZOLE [Concomitant]
     Dosage: DAILY
     Dates: start: 20070701
  4. ASPIRIN [Concomitant]
     Dosage: DAILY
     Dates: start: 20070430

REACTIONS (3)
  - DYSAESTHESIA [None]
  - NEUROPATHY PERIPHERAL [None]
  - PARAESTHESIA [None]
